FAERS Safety Report 4973055-3 (Version None)
Quarter: 2006Q2

REPORT INFORMATION
  Report Type: 
  Country: None (occurrence: None)
  Receive Date: 20060407
  Receipt Date: 20060328
  Transmission Date: 20061013
  Serious: Yes (Hospitalization, Other)
  Sender: FDA-Public Use
  Company Number: HQWYE584130MAR06

PATIENT
  Age: 69 Year
  Sex: Female

DRUGS (9)
  1. EFFEXOR [Suspect]
     Indication: ANXIETY
     Dosage: 37.5 MG PER 1 DAY
  2. EFFEXOR [Suspect]
     Indication: DEPRESSED MOOD
     Dosage: 37.5 MG PER 1 DAY
  3. EFFEXOR [Suspect]
     Indication: SOMNOLENCE
     Dosage: 37.5 MG PER 1 DAY
  4. BUSPIROINE (BUSPIRONE, ) [Suspect]
     Indication: ANXIETY
     Dosage: 20 MG, 1X PER 1 DAY
  5. BUSPIROINE (BUSPIRONE, ) [Suspect]
     Indication: SLEEP DISORDER
     Dosage: 20 MG, 1X PER 1 DAY
  6. FLUOXETINE [Suspect]
     Indication: DEPRESSED MOOD
     Dosage: 20 MG, 1X PER 1 DAY
  7. TRAZODONE HCL [Suspect]
     Indication: DEPRESSED MOOD
     Dosage: 150 MG 1X PER 1 DAY
  8. ZOLPIDEM TARTRATE [Suspect]
     Indication: ANXIETY
     Dosage: 10 MG 1X PER 1 DAY
  9. ZOLPIDEM TARTRATE [Suspect]
     Indication: SLEEP DISORDER
     Dosage: 10 MG 1X PER 1 DAY

REACTIONS (16)
  - ABNORMAL BEHAVIOUR [None]
  - COORDINATION ABNORMAL [None]
  - DELUSION OF GRANDEUR [None]
  - DEPRESSED LEVEL OF CONSCIOUSNESS [None]
  - DIARRHOEA [None]
  - DISORIENTATION [None]
  - DRUG INTERACTION [None]
  - FLIGHT OF IDEAS [None]
  - INSOMNIA [None]
  - IRRITABILITY [None]
  - MANIA [None]
  - MUSCLE SPASMS [None]
  - MYALGIA [None]
  - PSYCHOMOTOR HYPERACTIVITY [None]
  - SEROTONIN SYNDROME [None]
  - TREMOR [None]
